FAERS Safety Report 13547261 (Version 2)
Quarter: 2017Q2

REPORT INFORMATION
  Report Type: Report from Study
  Country: US (occurrence: US)
  Receive Date: 20170515
  Receipt Date: 20170519
  Transmission Date: 20170830
  Serious: Yes (Death, Hospitalization)
  Sender: FDA-Public Use
  Company Number: US-ACTELION-A-US2017-149677

PATIENT
  Age: 49 Year
  Sex: Female

DRUGS (20)
  1. LASIX [Concomitant]
     Active Substance: FUROSEMIDE
  2. FISH OIL [Concomitant]
     Active Substance: FISH OIL
  3. DELTASONE [Concomitant]
     Active Substance: PREDNISONE
  4. ADCIRCA [Concomitant]
     Active Substance: TADALAFIL
  5. HERBALS [Concomitant]
     Active Substance: HERBALS
  6. OXYGEN. [Concomitant]
     Active Substance: OXYGEN
     Indication: PULMONARY HYPERTENSION
     Dosage: UNK
     Dates: start: 20170203
  7. ELIQUIS [Concomitant]
     Active Substance: APIXABAN
  8. ZOFRAN [Concomitant]
     Active Substance: ONDANSETRON HYDROCHLORIDE
  9. OPSUMIT [Suspect]
     Active Substance: MACITENTAN
     Indication: PULMONARY ARTERIAL HYPERTENSION
     Dosage: 10 MG, QD
     Route: 048
     Dates: start: 20170203, end: 20170327
  10. THERAGRAN [Concomitant]
     Active Substance: VITAMINS
  11. CHLOROPHYLLIN COPPER COMPLEX [Concomitant]
  12. LACTOBAC [Concomitant]
     Active Substance: LACTOBACILLUS ACIDOPHILUS
  13. ALBUTEROL. [Concomitant]
     Active Substance: ALBUTEROL
  14. MIRALAX [Concomitant]
     Active Substance: POLYETHYLENE GLYCOL 3350
  15. TYLENOL [Concomitant]
     Active Substance: ACETAMINOPHEN
  16. ROBITUSSIN DM [Concomitant]
     Active Substance: DEXTROMETHORPHAN HYDROBROMIDE\GUAIFENESIN
  17. FERROUS GLUCONATE [Concomitant]
     Active Substance: FERROUS GLUCONATE
  18. TYVASO [Concomitant]
     Active Substance: TREPROSTINIL
  19. BUSPAR [Concomitant]
     Active Substance: BUSPIRONE HYDROCHLORIDE
  20. CELLCEPT [Concomitant]
     Active Substance: MYCOPHENOLATE MOFETIL\MYCOPHENOLATE MOFETIL HYDROCHLORIDE

REACTIONS (11)
  - Abdominal distension [Not Recovered/Not Resolved]
  - Right ventricular failure [Fatal]
  - Hypoxia [Not Recovered/Not Resolved]
  - Cough [Not Recovered/Not Resolved]
  - Rhinorrhoea [Not Recovered/Not Resolved]
  - Pulmonary arterial hypertension [Fatal]
  - Respiratory failure [Fatal]
  - Dyspnoea [Not Recovered/Not Resolved]
  - Fluid retention [Unknown]
  - Oxygen saturation decreased [Not Recovered/Not Resolved]
  - Weight increased [Not Recovered/Not Resolved]

NARRATIVE: CASE EVENT DATE: 20170222
